FAERS Safety Report 7937817-2 (Version None)
Quarter: 2011Q4

REPORT INFORMATION
  Report Type: 
  Country: None (occurrence: None)
  Receive Date: 20111123
  Receipt Date: 20111122
  Transmission Date: 20120403
  Serious: Yes (Life-Threatening, Hospitalization)
  Sender: FDA-Public Use
  Company Number: US-B.I. PHARMACEUTICALS,INC./RIDGEFIELD-2011-BP-25419BP

PATIENT
  Age: 80 Year
  Sex: Male
  Weight: 90.71 kg

DRUGS (3)
  1. PRADAXA [Suspect]
     Indication: ATRIAL FIBRILLATION
  2. ASPIRIN [Concomitant]
     Indication: STENT PLACEMENT
  3. PLAVIX [Concomitant]
     Indication: STENT PLACEMENT

REACTIONS (4)
  - SMALL INTESTINAL HAEMORRHAGE [None]
  - THROMBOSIS [None]
  - MELAENA [None]
  - PERICARDIAL HAEMORRHAGE [None]
